FAERS Safety Report 20429556 (Version 1)
Quarter: 2022Q1

REPORT INFORMATION
  Report Type: Report from Study
  Country: US (occurrence: US)
  Receive Date: 20220204
  Receipt Date: 20220204
  Transmission Date: 20220423
  Serious: Yes (Death, Life-Threatening, Hospitalization, Other)
  Sender: FDA-Public Use
  Company Number: 2019476807

PATIENT

DRUGS (6)
  1. ONCASPAR [Suspect]
     Active Substance: PEGASPARGASE
     Indication: Acute lymphocytic leukaemia
     Dosage: 3750 IU, UNK
     Route: 065
     Dates: start: 20190918, end: 20190918
  2. TN UNSPECIFIED [Concomitant]
     Indication: Acute lymphocytic leukaemia
     Dosage: 70 MG, UNK
     Route: 037
     Dates: start: 20190913, end: 20190913
  3. TN UNSPECIFIED [Concomitant]
     Indication: Acute lymphocytic leukaemia
     Dosage: 190 MG, UNK
     Route: 042
     Dates: start: 20190915, end: 20191007
  4. TN UNSPECIFIED [Concomitant]
     Indication: Acute lymphocytic leukaemia
     Dosage: 10 MG, BID
     Route: 048
     Dates: start: 20190915, end: 20191007
  5. TN UNSPECIFIED [Concomitant]
     Indication: Acute lymphocytic leukaemia
     Dosage: 15 MG, UNK
     Route: 037
     Dates: start: 20190923, end: 20190923
  6. TN UNSPECIFIED [Concomitant]
     Indication: Acute lymphocytic leukaemia
     Dosage: 8 MG
     Route: 065
     Dates: start: 20190915, end: 20191007

REACTIONS (5)
  - Embolism [Fatal]
  - Haemorrhage intracranial [Unknown]
  - Cerebral ischaemia [Unknown]
  - Seizure [Unknown]
  - Blood fibrinogen decreased [Unknown]

NARRATIVE: CASE EVENT DATE: 20191004
